FAERS Safety Report 18056086 (Version 1)
Quarter: 2020Q3

REPORT INFORMATION
  Report Type: Spontaneous
  Country: US (occurrence: US)
  Receive Date: 20200722
  Receipt Date: 20200722
  Transmission Date: 20201103
  Serious: Yes (Other)
  Sender: FDA-Public Use
  Company Number: NVSC2020US197823

PATIENT
  Sex: Male

DRUGS (41)
  1. PREDNISOLONE. [Suspect]
     Active Substance: PREDNISOLONE
     Indication: LANGERHANS^ CELL HISTIOCYTOSIS
     Dosage: UNK, QW (WEEK 4) CYCLE 1
     Route: 065
     Dates: start: 20171027
  2. VINBLASTINE [Suspect]
     Active Substance: VINBLASTINE
     Dosage: UNK WEEK 6 (CYCLE 2)
     Route: 065
     Dates: start: 20171229
  3. CLOFARABINE. [Suspect]
     Active Substance: CLOFARABINE
     Dosage: 16 MG/M2 UNK (CYCLE 5)
     Route: 065
     Dates: start: 20180525
  4. CLOFARABINE. [Suspect]
     Active Substance: CLOFARABINE
     Dosage: 16 MG/M2 UNK (CYCLE 6)
     Route: 065
     Dates: start: 20180622
  5. PREDNISOLONE. [Suspect]
     Active Substance: PREDNISOLONE
     Dosage: UNK, QW (WEEK 6) CYCLE 1
     Route: 065
     Dates: start: 20171110
  6. PREDNISOLONE. [Suspect]
     Active Substance: PREDNISOLONE
     Dosage: UNK, QW WEEK 3 (CYCLE 2)
     Route: 065
     Dates: start: 20171208
  7. PREDNISOLONE. [Suspect]
     Active Substance: PREDNISOLONE
     Dosage: UNK, QW WEEK 4 (CYCLE 4)
     Route: 065
     Dates: start: 20171215
  8. CLOFARABINE. [Suspect]
     Active Substance: CLOFARABINE
     Dosage: 16 MG/M2 UNK (CYCLE 2)
     Route: 065
     Dates: start: 20180302
  9. CLOFARABINE. [Suspect]
     Active Substance: CLOFARABINE
     Dosage: UNK CYCLE 11
     Route: 065
     Dates: start: 20181116
  10. CLOFARABINE. [Suspect]
     Active Substance: CLOFARABINE
     Dosage: CYCLE 12 UNK
     Route: 065
     Dates: start: 20181114
  11. VINBLASTINE [Suspect]
     Active Substance: VINBLASTINE
     Indication: NEURODEGENERATIVE DISORDER
     Dosage: UNK WEEK 1 (CYCLE 1) QW
     Route: 065
     Dates: start: 20171005
  12. VINBLASTINE [Suspect]
     Active Substance: VINBLASTINE
     Dosage: UNK WEEK 1 (CYCLE 2)
     Route: 065
     Dates: start: 20171124
  13. VINBLASTINE [Suspect]
     Active Substance: VINBLASTINE
     Dosage: UNK WEEK 3 (CYCLE 2)
     Route: 065
     Dates: start: 20171208
  14. CLOFARABINE. [Suspect]
     Active Substance: CLOFARABINE
     Dosage: 16 MG/M2 UNK (CYCLE 1)
     Route: 065
     Dates: start: 20180206
  15. CLOFARABINE. [Suspect]
     Active Substance: CLOFARABINE
     Dosage: CYCLE 13 UNK
     Route: 065
     Dates: start: 20190111
  16. PREDNISONE. [Suspect]
     Active Substance: PREDNISONE
     Indication: NEURODEGENERATIVE DISORDER
     Dosage: UNK, QW (WEEK 2)
     Route: 065
     Dates: start: 20171013
  17. VINBLASTINE [Suspect]
     Active Substance: VINBLASTINE
     Dosage: UNK WEEK 6 (CYCLE 1)
     Route: 065
     Dates: start: 20171110
  18. VINBLASTINE [Suspect]
     Active Substance: VINBLASTINE
     Dosage: UNK WEEK 4 (CYCLE 2)
     Route: 065
     Dates: start: 20171215
  19. CLOFARABINE. [Suspect]
     Active Substance: CLOFARABINE
     Dosage: UNK CYCLE 10
     Route: 065
     Dates: start: 20181019
  20. PREDNISONE. [Suspect]
     Active Substance: PREDNISONE
     Indication: LANGERHANS^ CELL HISTIOCYTOSIS
     Dosage: (WEEK 1)UNK, QW
     Route: 065
     Dates: start: 20171005
  21. PREDNISOLONE. [Suspect]
     Active Substance: PREDNISOLONE
     Dosage: WEEK 1 (CYCLE 2)
     Route: 065
     Dates: start: 20171124
  22. VINBLASTINE [Suspect]
     Active Substance: VINBLASTINE
     Indication: LANGERHANS^ CELL HISTIOCYTOSIS
     Dosage: UNK WEEK 2 (CYCLE 1) QW
     Route: 065
     Dates: start: 20171013
  23. VINBLASTINE [Suspect]
     Active Substance: VINBLASTINE
     Dosage: UNK (WEEK 3 ) CYCLE 1 QW
     Route: 065
     Dates: start: 20171020
  24. VINBLASTINE [Suspect]
     Active Substance: VINBLASTINE
     Dosage: UNK WEEK 5( CYCLE 1)
     Route: 065
     Dates: start: 20171113
  25. CYTARABINE. [Suspect]
     Active Substance: CYTARABINE
     Indication: NEURODEGENERATIVE DISORDER
     Dosage: COMPLETED 1 CYCLE
     Route: 065
  26. CYTARABINE. [Suspect]
     Active Substance: CYTARABINE
     Indication: LANGERHANS^ CELL HISTIOCYTOSIS
  27. CLOFARABINE. [Suspect]
     Active Substance: CLOFARABINE
     Dosage: 16 MG/M2 UNK (CYCLE 3)
     Route: 065
     Dates: start: 20180330
  28. PREDNISOLONE. [Suspect]
     Active Substance: PREDNISOLONE
     Dosage: UNK, QW (WEEK 5) CYCLE 1
     Route: 065
     Dates: start: 20171113
  29. PREDNISOLONE. [Suspect]
     Active Substance: PREDNISOLONE
     Dosage: UNK, QW WEEK 2 (CYCLE 2)
     Route: 065
     Dates: start: 20171201
  30. PREDNISOLONE. [Suspect]
     Active Substance: PREDNISOLONE
     Dosage: UNK, QW (WEEK 5 )CYCLE 2
     Route: 065
     Dates: start: 20171222
  31. CLOFARABINE. [Suspect]
     Active Substance: CLOFARABINE
     Dosage: 16 MG/M2 UNK (CYCLE 4)
     Route: 065
     Dates: start: 20180427
  32. CLOFARABINE. [Suspect]
     Active Substance: CLOFARABINE
     Dosage: CYCLE 7
     Route: 065
     Dates: start: 20180727
  33. CLOFARABINE. [Suspect]
     Active Substance: CLOFARABINE
     Dosage: UNK CYCLE 9
     Route: 065
     Dates: start: 20180921
  34. VINBLASTINE [Suspect]
     Active Substance: VINBLASTINE
     Dosage: UNK WEEK 4 (CYCLE 1)
     Route: 065
     Dates: start: 20171027
  35. VINBLASTINE [Suspect]
     Active Substance: VINBLASTINE
     Dosage: UNK,  WEEK 5 (CYCLE 2)QW
     Route: 065
     Dates: start: 20171222
  36. CLOFARABINE. [Suspect]
     Active Substance: CLOFARABINE
     Indication: LANGERHANS^ CELL HISTIOCYTOSIS
     Dosage: 16 MG/M2 (DAY 1 TO 5)
     Route: 065
  37. PREDNISOLONE. [Suspect]
     Active Substance: PREDNISOLONE
     Indication: NEURODEGENERATIVE DISORDER
     Dosage: UNK, QW WEEK 3 (CYCLE 1)
     Route: 065
     Dates: start: 20171020
  38. PREDNISOLONE. [Suspect]
     Active Substance: PREDNISOLONE
     Dosage: UNK, QW WEEK 6 (CYCLE 2)
     Route: 065
     Dates: start: 20171229
  39. VINBLASTINE [Suspect]
     Active Substance: VINBLASTINE
     Dosage: UNK (WEEK 7)CYCLE1
     Route: 065
     Dates: start: 20171117
  40. VINBLASTINE [Suspect]
     Active Substance: VINBLASTINE
     Dosage: UNK WEEK 2 (CYCLE 2)
     Route: 065
     Dates: start: 20171201
  41. CLOFARABINE. [Suspect]
     Active Substance: CLOFARABINE
     Dosage: CYCLE 8 UNK
     Route: 065
     Dates: start: 20180824

REACTIONS (3)
  - Dysphagia [Unknown]
  - Neurodegenerative disorder [Unknown]
  - Langerhans^ cell histiocytosis [Unknown]
